FAERS Safety Report 8247450-3 (Version None)
Quarter: 2012Q1

REPORT INFORMATION
  Report Type: 
  Country: None (occurrence: None)
  Receive Date: 20120330
  Receipt Date: 20120321
  Transmission Date: 20120608
  Serious: Yes (Other)
  Sender: FDA-Public Use
  Company Number: SI-FRI-1000029410

PATIENT
  Sex: Female

DRUGS (2)
  1. MEMANTINE [Suspect]
     Dosage: 5 MG
     Route: 048
  2. MEMANTINE [Suspect]
     Indication: DEMENTIA ALZHEIMER'S TYPE
     Dosage: 20 MG
     Route: 048

REACTIONS (2)
  - IMMOBILE [None]
  - VERTIGO [None]
